FAERS Safety Report 18104786 (Version 1)
Quarter: 2020Q3

REPORT INFORMATION
  Report Type: Report from Study
  Country: None (occurrence: BR)
  Receive Date: 20200804
  Receipt Date: 20200804
  Transmission Date: 20201103
  Serious: Yes (Other)
  Sender: FDA-Public Use
  Company Number: BR-ABBVIE-20K-020-3508813-00

PATIENT
  Sex: Male
  Weight: 100 kg

DRUGS (8)
  1. HUMIRA [Suspect]
     Active Substance: ADALIMUMAB
     Route: 058
     Dates: end: 201903
  2. LOSARTAN. [Concomitant]
     Active Substance: LOSARTAN
     Indication: HYPERTENSION
  3. HUMIRA [Suspect]
     Active Substance: ADALIMUMAB
     Route: 058
     Dates: start: 201909
  4. ATENOLOL. [Concomitant]
     Active Substance: ATENOLOL
     Indication: HYPERTENSION
  5. COSENTYX [Concomitant]
     Active Substance: SECUKINUMAB
     Indication: ANKYLOSING SPONDYLITIS
     Dosage: LOADING DOSE
     Route: 030
     Dates: start: 201903
  6. HUMIRA [Suspect]
     Active Substance: ADALIMUMAB
     Indication: ANKYLOSING SPONDYLITIS
     Route: 058
     Dates: start: 20060101
  7. HUMIRA [Suspect]
     Active Substance: ADALIMUMAB
     Route: 058
  8. COSENTYX [Concomitant]
     Active Substance: SECUKINUMAB
     Dosage: 1 UNSPECIFIC DOSE
     Route: 030

REACTIONS (8)
  - Toothache [Not Recovered/Not Resolved]
  - Appendicectomy [Recovered/Resolved]
  - Glucose tolerance impaired [Unknown]
  - Tooth fracture [Not Recovered/Not Resolved]
  - Inflammation [Recovered/Resolved]
  - Spondylitis [Unknown]
  - Localised infection [Recovered/Resolved]
  - Pain [Not Recovered/Not Resolved]

NARRATIVE: CASE EVENT DATE: 2008
